FAERS Safety Report 18002822 (Version 7)
Quarter: 2022Q1

REPORT INFORMATION
  Report Type: Report from Study
  Country: US (occurrence: US)
  Receive Date: 20200710
  Receipt Date: 20220207
  Transmission Date: 20220423
  Serious: Yes (Hospitalization, Other)
  Sender: FDA-Public Use
  Company Number: US-AEGERION PHARMACEUTICAL, INC-AEGR004905

PATIENT
  Age: 35 Year
  Sex: Male

DRUGS (21)
  1. METRELEPTIN [Suspect]
     Active Substance: METRELEPTIN
     Indication: Congenital generalised lipodystrophy
     Dosage: 10 MILLIGRAM, QD
     Dates: start: 20030205
  2. METRELEPTIN [Suspect]
     Active Substance: METRELEPTIN
     Dosage: 5 MILLIGRAM, BID
     Dates: start: 20140225
  3. METRELEPTIN [Suspect]
     Active Substance: METRELEPTIN
     Dosage: 10 MILLIGRAM, QD
     Route: 058
  4. FENOFIBRATE [Concomitant]
     Active Substance: FENOFIBRATE
     Indication: Hypertriglyceridaemia
     Dosage: 134 MG, QD
     Route: 048
     Dates: start: 2015
  5. INSULIN NOS [Concomitant]
     Active Substance: INSULIN NOS
     Indication: Diabetes mellitus
     Dosage: 20 UNITS, 5/DAY
     Route: 058
     Dates: start: 2003
  6. INSULIN NOS [Concomitant]
     Active Substance: INSULIN NOS
     Indication: Lipodystrophy acquired
  7. CHOLECALCIFEROL [Concomitant]
     Active Substance: CHOLECALCIFEROL
     Indication: Product used for unknown indication
  8. BACTERIOSTATIC WATER [Concomitant]
     Active Substance: WATER
     Indication: Product used for unknown indication
  9. KETOCONAZOLE [Concomitant]
     Active Substance: KETOCONAZOLE
     Indication: Product used for unknown indication
  10. CEPHALEXIN [Concomitant]
     Active Substance: CEPHALEXIN
     Indication: Product used for unknown indication
  11. METOPROLOL TARTRATE [Concomitant]
     Active Substance: METOPROLOL TARTRATE
     Indication: Product used for unknown indication
  12. POTASSIUM CHLORIDE [Concomitant]
     Active Substance: POTASSIUM CHLORIDE
     Indication: Product used for unknown indication
  13. POTASSIUM CHLORIDE [Concomitant]
     Active Substance: POTASSIUM CHLORIDE
     Indication: Product used for unknown indication
  14. FISH OIL\OMEGA-3 FATTY ACIDS [Concomitant]
     Active Substance: FISH OIL\OMEGA-3 FATTY ACIDS
     Indication: Product used for unknown indication
  15. AMLODIPINE BESYLATE [Concomitant]
     Active Substance: AMLODIPINE BESYLATE
     Indication: Product used for unknown indication
  16. TRIMETHOPRIM [Concomitant]
     Active Substance: TRIMETHOPRIM
     Indication: Product used for unknown indication
  17. LISINOPRIL [Concomitant]
     Active Substance: LISINOPRIL
     Indication: Product used for unknown indication
  18. VITAMIN D NOS [Concomitant]
     Active Substance: VITAMIN D NOS
     Indication: Product used for unknown indication
  19. TRIMEPRAZINE TARTRATE [Concomitant]
     Active Substance: TRIMEPRAZINE TARTRATE
     Indication: Product used for unknown indication
  20. HUMULIN R [Concomitant]
     Active Substance: INSULIN HUMAN
     Indication: Product used for unknown indication
  21. BACTRIM [Concomitant]
     Active Substance: SULFAMETHOXAZOLE\TRIMETHOPRIM
     Indication: Product used for unknown indication

REACTIONS (7)
  - Sepsis [Recovered/Resolved]
  - Gastrointestinal haemorrhage [Recovered/Resolved]
  - Non-cardiac chest pain [Recovered/Resolved]
  - Musculoskeletal chest pain [Recovered/Resolved]
  - Peripheral swelling [Recovered/Resolved]
  - Therapy interrupted [Unknown]
  - Product supply issue [Unknown]

NARRATIVE: CASE EVENT DATE: 20180909
